FAERS Safety Report 17021220 (Version 3)
Quarter: 2020Q3

REPORT INFORMATION
  Report Type: Spontaneous
  Country: CA (occurrence: CA)
  Receive Date: 20191112
  Receipt Date: 20200713
  Transmission Date: 20201102
  Serious: Yes (Hospitalization, Other)
  Sender: FDA-Public Use
  Company Number: CA-PFIZER INC-2019478154

PATIENT
  Age: 45 Year
  Sex: Male
  Weight: 76 kg

DRUGS (3)
  1. ADVIL LIQUI?GELS [Suspect]
     Active Substance: IBUPROFEN
     Indication: KNEE OPERATION
     Dosage: 200 MG, AS NEEDED
     Dates: start: 201705, end: 201906
  2. ADVIL LIQUI?GELS [Suspect]
     Active Substance: IBUPROFEN
     Dosage: UNK, DAILY
     Dates: start: 201810, end: 201904
  3. ADVIL LIQUI?GELS [Suspect]
     Active Substance: IBUPROFEN
     Indication: ARTHROPATHY
     Dosage: 2 DF, 2X/DAY (MORNING AND NIGHT)
     Dates: start: 201705, end: 201906

REACTIONS (4)
  - Renal disorder [Unknown]
  - Renal failure [Not Recovered/Not Resolved]
  - Asthenia [Unknown]
  - Contraindicated product administered [Unknown]
